FAERS Safety Report 9477423 (Version 1)
Quarter: 2013Q3

REPORT INFORMATION
  Report Type: Report from Study
  Country: PL (occurrence: PL)
  Receive Date: 20130826
  Receipt Date: 20130826
  Transmission Date: 20140515
  Serious: Yes (Hospitalization)
  Sender: FDA-Public Use
  Company Number: PL-ROCHE-1265949

PATIENT
  Age: 61 Year
  Sex: Male

DRUGS (8)
  1. RITUXIMAB [Suspect]
     Indication: MALIGNANT LYMPHOID NEOPLASM
     Dosage: DATE OF MOST RECENT DOSE 03/SEP/2009 PRIOR TO SAE (6 TH CYCLE)
     Route: 042
  2. CYCLOPHOSPHAMIDE [Suspect]
     Indication: MALIGNANT LYMPHOID NEOPLASM
     Route: 065
  3. DOXORUBICIN [Suspect]
     Indication: MALIGNANT LYMPHOID NEOPLASM
     Route: 065
  4. VINCRISTINE [Suspect]
     Indication: MALIGNANT LYMPHOID NEOPLASM
     Route: 065
  5. PREDNISONE [Suspect]
     Indication: MALIGNANT LYMPHOID NEOPLASM
     Route: 065
  6. INSULIN [Concomitant]
     Indication: DIABETES MELLITUS
  7. SPIRONOLACTONE [Concomitant]
     Indication: HYPERTENSION
  8. ANESTELOC [Concomitant]
     Indication: HYPERTENSION
     Route: 065

REACTIONS (1)
  - Hepatitis toxic [Unknown]
